FAERS Safety Report 12037362 (Version 1)
Quarter: 2016Q1

REPORT INFORMATION
  Report Type: Spontaneous
  Country: US (occurrence: None)
  Receive Date: 20160205
  Receipt Date: 20160205
  Transmission Date: 20160526
  Serious: Yes (Death, Hospitalization)
  Sender: FDA-Public Use
  Company Number: None

PATIENT
  Age: 16 Year
  Sex: Female
  Weight: 96.9 kg

DRUGS (2)
  1. CYTARABINE. [Suspect]
     Active Substance: CYTARABINE
     Dates: start: 20150521, end: 20150806
  2. MITOXANTRONE HYDROCHLORIDE. [Suspect]
     Active Substance: MITOXANTRONE HYDROCHLORIDE
     Dates: end: 20150707

REACTIONS (10)
  - Vomiting [None]
  - Seizure [None]
  - Blood pressure increased [None]
  - Somnolence [None]
  - Hydrocephalus [None]
  - Headache [None]
  - Nausea [None]
  - Pupils unequal [None]
  - Brain herniation [None]
  - Hyperventilation [None]

NARRATIVE: CASE EVENT DATE: 20150802
